FAERS Safety Report 9466772 (Version 1)
Quarter: 2013Q3

REPORT INFORMATION
  Report Type: Spontaneous
  Country: US (occurrence: US)
  Receive Date: 20130820
  Receipt Date: 20130820
  Transmission Date: 20140515
  Serious: Yes (Disabling, Other)
  Sender: FDA-Public Use
  Company Number: US-009507513-1308USA008856

PATIENT
  Sex: Female

DRUGS (3)
  1. NUVARING [Suspect]
     Indication: CONTRACEPTION
     Dosage: 3 WEEKS IN/I WEEK OUT
     Route: 067
     Dates: start: 200702, end: 20080402
  2. NUVARING [Suspect]
     Dosage: 3 WEEKS IN/I WEEK OUT
     Route: 067
     Dates: start: 20091019, end: 201002
  3. LOVENOX [Concomitant]

REACTIONS (2)
  - Caesarean section [Unknown]
  - Maternal exposure before pregnancy [Unknown]
